FAERS Safety Report 9064945 (Version 1)
Quarter: 2013Q1

REPORT INFORMATION
  Report Type: Spontaneous
  Country: JP (occurrence: JP)
  Receive Date: 20130128
  Receipt Date: 20130128
  Transmission Date: 20140127
  Serious: Yes (Life-Threatening, Hospitalization)
  Sender: FDA-Public Use
  Company Number: PHHY2013JP007214

PATIENT
  Age: 33 Year
  Sex: Male
  Weight: 106 kg

DRUGS (1)
  1. TEGRETOL [Suspect]
     Indication: EPILEPSY
     Dosage: UNK UKN, UNK
     Route: 048
     Dates: end: 20120619

REACTIONS (6)
  - Pulmonary alveolar haemorrhage [Recovering/Resolving]
  - Haemoptysis [Recovering/Resolving]
  - Dyspnoea [Recovering/Resolving]
  - Cough [Recovering/Resolving]
  - Lung infiltration [Recovering/Resolving]
  - Hypoxia [Recovering/Resolving]
